FAERS Safety Report 8114777-5 (Version None)
Quarter: 2012Q1

REPORT INFORMATION
  Report Type: 
  Country: None (occurrence: None)
  Receive Date: 20120206
  Receipt Date: 20120123
  Transmission Date: 20120608
  Serious: Yes (Hospitalization, Other)
  Sender: FDA-Public Use
  Company Number: US-ELI_LILLY_AND_COMPANY-US201107006156

PATIENT
  Sex: Female

DRUGS (10)
  1. FORTEO [Suspect]
     Dosage: 20 UG, QD
     Route: 065
  2. OSTEO BI-FLEX [Concomitant]
     Dosage: UNK, QD
     Route: 065
  3. ACETAMINOPHEN [Concomitant]
     Dosage: UNK, QD
     Route: 065
  4. ASPIRIN [Concomitant]
     Dosage: UNK, QD
     Route: 065
  5. ANTIGLAUCOMA PREPARATIONS AND MIOTICS [Concomitant]
     Indication: GLAUCOMA
     Dosage: UNK, QD
     Route: 065
  6. VITAMIN TAB [Concomitant]
     Dosage: UNK, QD
     Route: 065
  7. TRAMADOL HCL [Concomitant]
     Dosage: UNK, QD
     Route: 065
  8. FORTEO [Suspect]
     Indication: OSTEOPOROSIS
     Dosage: 20 UG, QD
     Route: 065
  9. LORATADINE [Concomitant]
     Dosage: UNK, UNKNOWN
     Route: 065
  10. DIOVAN [Concomitant]
     Dosage: UNK, UNKNOWN
     Route: 065

REACTIONS (10)
  - FALL [None]
  - HIP FRACTURE [None]
  - MENTAL IMPAIRMENT [None]
  - GAIT DISTURBANCE [None]
  - VISUAL ACUITY REDUCED [None]
  - MOBILITY DECREASED [None]
  - FEELING ABNORMAL [None]
  - INJECTION SITE PAIN [None]
  - WRIST FRACTURE [None]
  - CONTUSION [None]
